FAERS Safety Report 23382326 (Version 1)
Quarter: 2024Q1

REPORT INFORMATION
  Report Type: Other
  Country: CN (occurrence: None)
  Receive Date: 20240109
  Receipt Date: 20240109
  Transmission Date: 20240410
  Serious: Yes (Death, Other)
  Sender: FDA-Public Use
  Company Number: CN-ROCHE-3486306

PATIENT

DRUGS (5)
  1. ATEZOLIZUMAB [Suspect]
     Active Substance: ATEZOLIZUMAB
     Indication: Small cell lung cancer
     Route: 065
  2. DURVALUMAB [Suspect]
     Active Substance: DURVALUMAB
     Indication: Small cell lung cancer
     Route: 042
  3. ETOPOSIDE [Suspect]
     Active Substance: ETOPOSIDE
     Indication: Small cell lung cancer
     Dosage: 80 - 100 MG/M2 BODY SURFACE AREA, ON DAYS 1-3 OF EACH CYCLE
     Route: 042
  4. CARBOPLATIN [Suspect]
     Active Substance: CARBOPLATIN
     Indication: Small cell lung cancer
     Dosage: UNDER THE CURVE OF 5 - 6 MG/ML/MIN, INTRAVENOUSLY ON DAY 1 OF EACH CYCLE
     Route: 042
  5. CISPLATIN [Suspect]
     Active Substance: CISPLATIN
     Indication: Small cell lung cancer
     Dosage: 75 - 80 MG/MSQUARE, ADMINISTERED ON DAY ONE OF EACH CYCLE
     Route: 065

REACTIONS (19)
  - Death [Fatal]
  - Neutropenia [Unknown]
  - Fatigue [Unknown]
  - Febrile neutropenia [Unknown]
  - Thrombocytopenia [Unknown]
  - Vomiting [Unknown]
  - Nausea [Unknown]
  - Anaemia [Unknown]
  - Alopecia [Unknown]
  - Pulmonary toxicity [Unknown]
  - Hepatotoxicity [Unknown]
  - Pancreatic toxicity [Unknown]
  - Endocrine toxicity [Unknown]
  - Constipation [Unknown]
  - Colitis [Unknown]
  - Blood creatinine increased [Unknown]
  - Skin toxicity [Unknown]
  - Gastrointestinal toxicity [Unknown]
  - Neurotoxicity [Unknown]
